FAERS Safety Report 16890568 (Version 1)
Quarter: 2019Q4

REPORT INFORMATION
  Report Type: Spontaneous
  Country: US (occurrence: US)
  Receive Date: 20190812
  Receipt Date: 20190812
  Transmission Date: 20200122
  Serious: No
  Sender: FDA-Public Use
  Company Number: None

PATIENT
  Age: 16 Year
  Sex: Male

DRUGS (1)
  1. AUSTEDO [Suspect]
     Active Substance: DEUTETRABENAZINE
     Indication: MOVEMENT DISORDER
     Dates: start: 20190128

REACTIONS (3)
  - Fatigue [None]
  - Hypersomnia [None]
  - Weight increased [None]

NARRATIVE: CASE EVENT DATE: 20190805
